FAERS Safety Report 8000963-1 (Version None)
Quarter: 2011Q4

REPORT INFORMATION
  Report Type: 
  Country: None (occurrence: None)
  Receive Date: 20111219
  Receipt Date: 20111206
  Transmission Date: 20120403
  Serious: Yes (Hospitalization)
  Sender: FDA-Public Use
  Company Number: 2011HGS-002918

PATIENT
  Age: 44 Year
  Sex: Female
  Weight: 104.3273 kg

DRUGS (16)
  1. NORVASC [Concomitant]
  2. NEURONTIN [Concomitant]
  3. CELLCEPT (MYCOPHENOLATE MOFETIL) (MYCOPHENOLATE MOFETIL) [Concomitant]
  4. MAGNESIUM (MAGNESIUM) (MAGNESIUM) [Concomitant]
  5. PREDNISONE [Concomitant]
  6. HYDROXYCHLOROQUINE (HYDROXYCHLOROQUINE) (HYDROXYCHLOROQUINE) [Concomitant]
  7. CALCIUM SULFATE (CALCIUM) (CALCIUM) [Concomitant]
  8. LORTAB (VICODIN) (PARACETAMOL, HYDROCODONE BITARTRATE) [Concomitant]
  9. CALCITROL (CALCITROL) (ERGOCALCIFEROL, RETINOL, CALCIUM CARBONATE) [Concomitant]
  10. NEXIUM [Concomitant]
  11. HYDROCHLOROTHIZIDE (HYDROCHLOROTHIAZIDE) (HYDROCHLOROTHIAZIDE) [Concomitant]
  12. BENLYSTA [Suspect]
     Indication: SYSTEMIC LUPUS ERYTHEMATOSUS
     Dosage: 10 MG/KG, 1 IN 28 D, INTRAVENOUS
     Route: 042
     Dates: start: 20110919
  13. CLONIDINE [Concomitant]
  14. TRAMADOL HCL [Concomitant]
  15. FLEXERIL (CYCLOBENZAPRINE HYDROCHLORIDE) (CYCLOBENZAPRINE HYDROCHLORID [Concomitant]
  16. PHENOBARBITAL TAB [Concomitant]

REACTIONS (9)
  - CHEST PAIN [None]
  - HEADACHE [None]
  - DIARRHOEA [None]
  - PRURITUS [None]
  - OEDEMA PERIPHERAL [None]
  - NAUSEA [None]
  - SKIN DISCOLOURATION [None]
  - CHEST DISCOMFORT [None]
  - ABDOMINAL PAIN UPPER [None]
